FAERS Safety Report 6248130-6 (Version None)
Quarter: 2009Q2

REPORT INFORMATION
  Report Type: 
  Country: None (occurrence: None)
  Receive Date: 20090624
  Receipt Date: 20090624
  Transmission Date: 20091009
  Serious: No
  Sender: FDA-Public Use
  Company Number: None

PATIENT
  Sex: Male
  Weight: 93.441 kg

DRUGS (2)
  1. LIPITOR [Suspect]
     Indication: CORONARY ARTERY DISEASE
     Dosage: 40 MG DAILY ORAL
     Route: 048
     Dates: start: 20020920, end: 20090101
  2. LIPITOR [Suspect]
     Indication: HYPERLIPIDAEMIA
     Dosage: 40 MG DAILY ORAL
     Route: 048
     Dates: start: 20020920, end: 20090101

REACTIONS (2)
  - ARTHRALGIA [None]
  - MYALGIA [None]
